FAERS Safety Report 23148503 (Version 1)
Quarter: 2023Q4

REPORT INFORMATION
  Report Type: Spontaneous
  Country: US (occurrence: None)
  Receive Date: 20231103
  Receipt Date: 20231103
  Transmission Date: 20240109
  Serious: Yes (Other)
  Sender: FDA-Public Use
  Company Number: None

PATIENT
  Age: 5 Year
  Sex: Male
  Weight: 25.5 kg

DRUGS (4)
  1. CALASPARGASE PEGOL [Suspect]
     Active Substance: CALASPARGASE PEGOL
     Indication: Acute lymphocytic leukaemia
     Dosage: OTHER FREQUENCY : ONCE IN INDUCTION;?
     Route: 042
     Dates: start: 20231029, end: 20231029
  2. DEXAMETHASONE [Concomitant]
     Active Substance: DEXAMETHASONE
     Dates: start: 20231027
  3. VINCRISTINE [Concomitant]
     Active Substance: VINCRISTINE
     Dates: start: 20231027
  4. duanomycin [Concomitant]
     Dates: start: 20231102

REACTIONS (6)
  - Enteritis [None]
  - Colitis [None]
  - Toxicity to various agents [None]
  - Hypertension [None]
  - Hyperglycaemia [None]
  - Acute kidney injury [None]

NARRATIVE: CASE EVENT DATE: 20231103
